FAERS Safety Report 5889926-X (Version None)
Quarter: 2008Q3

REPORT INFORMATION
  Report Type: 
  Country: None (occurrence: None)
  Receive Date: 20080919
  Receipt Date: 20080915
  Transmission Date: 20090109
  Serious: Yes (Life-Threatening)
  Sender: FDA-Public Use
  Company Number: PHEH2008US08231

PATIENT
  Age: 10 Year
  Sex: Male
  Weight: 24 kg

DRUGS (2)
  1. EXJADE [Suspect]
     Indication: IRON OVERLOAD
     Dosage: ALTERNATIVE DOSE 1000 MG /THREE TIMES WEEK AND 750 MG 4 TIMES WEEK
     Dates: start: 20030801, end: 20080912
  2. ERYTHROMYCIN [Concomitant]

REACTIONS (37)
  - ALANINE AMINOTRANSFERASE INCREASED [None]
  - ASPARTATE AMINOTRANSFERASE INCREASED [None]
  - BLOOD CULTURE POSITIVE [None]
  - BLOOD GLUCOSE INCREASED [None]
  - BLOOD UREA INCREASED [None]
  - BRAIN OEDEMA [None]
  - CARBON DIOXIDE ABNORMAL [None]
  - CARDIAC MURMUR [None]
  - CEREBRAL DECOMPRESSION [None]
  - CSF BACTERIA IDENTIFIED [None]
  - CSF GLUCOSE DECREASED [None]
  - CSF NEUTROPHIL COUNT INCREASED [None]
  - CSF PRESSURE INCREASED [None]
  - CSF PROTEIN INCREASED [None]
  - ESCHERICHIA SEPSIS [None]
  - EYE MOVEMENT DISORDER [None]
  - EYELID OEDEMA [None]
  - EYELID PTOSIS [None]
  - FACIAL PALSY [None]
  - HAEMATOCRIT DECREASED [None]
  - HAEMOGLOBIN DECREASED [None]
  - HEART SOUNDS ABNORMAL [None]
  - HEPATOMEGALY [None]
  - HYPOTENSION [None]
  - LUMBAR PUNCTURE ABNORMAL [None]
  - MENINGITIS BACTERIAL [None]
  - NEUROLOGICAL SYMPTOM [None]
  - NEUTROPHIL COUNT INCREASED [None]
  - NUCHAL RIGIDITY [None]
  - PERIPHERAL VASCULAR DISORDER [None]
  - PUPIL FIXED [None]
  - PUPILS UNEQUAL [None]
  - PYREXIA [None]
  - SEPTIC SHOCK [None]
  - TACHYCARDIA [None]
  - TACHYPNOEA [None]
  - WHITE BLOOD CELL COUNT INCREASED [None]
